FAERS Safety Report 7816097-2 (Version None)
Quarter: 2011Q4

REPORT INFORMATION
  Report Type: 
  Country: None (occurrence: None)
  Receive Date: 20111015
  Receipt Date: 20111005
  Transmission Date: 20120403
  Serious: Yes (Hospitalization, Other)
  Sender: FDA-Public Use
  Company Number: US-ASTRAZENECA-2010SE45867

PATIENT
  Age: 30 Year
  Sex: Female

DRUGS (5)
  1. METHADONE HCL [Concomitant]
  2. NEXIUM [Suspect]
     Indication: ULCER
     Route: 048
     Dates: start: 20070101
  3. AZETIL [Concomitant]
  4. NEXIUM [Suspect]
     Indication: GASTROOESOPHAGEAL REFLUX DISEASE
     Route: 048
     Dates: start: 20070101
  5. ZANTAC [Concomitant]

REACTIONS (4)
  - MALAISE [None]
  - HAEMATEMESIS [None]
  - ULCER HAEMORRHAGE [None]
  - DRUG DOSE OMISSION [None]
